FAERS Safety Report 6844397-1 (Version None)
Quarter: 2010Q3

REPORT INFORMATION
  Report Type: 
  Country: None (occurrence: None)
  Receive Date: 20100713
  Receipt Date: 20100629
  Transmission Date: 20110219
  Serious: Yes (Other)
  Sender: FDA-Public Use
  Company Number: US-1182454

PATIENT
  Sex: Female
  Weight: 77.1115 kg

DRUGS (6)
  1. NEVANAC [Suspect]
     Indication: CATARACT OPERATION
     Dosage: (3 GTT TID OS OPHTHALMIC), (1 GTT TID OS OPHTHALMIC), (BID OPHTHALMIC)
     Route: 047
     Dates: start: 20100622
  2. OMNIPRED [Suspect]
     Indication: CATARACT OPERATION
     Dosage: (3 GTT TID OS OPHTHALMIC), (BID OPHTHALMIC), (1 GTT TID OS OPHTHALMIC)
     Route: 047
     Dates: start: 20100622
  3. VIGAMOX [Suspect]
     Indication: CATARACT OPERATION
     Dosage: (3 GTT TID OS OPHTHALMIC), (1 GTT TID OU OPHTHALMIC)
     Route: 047
  4. PROAIR HFA [Concomitant]
  5. SYNTHROID [Concomitant]
  6. HYDROCHLOROTHIAZIDE [Concomitant]

REACTIONS (5)
  - CONDITION AGGRAVATED [None]
  - HYPOAESTHESIA ORAL [None]
  - VISION BLURRED [None]
  - VISUAL ACUITY REDUCED [None]
  - WHEEZING [None]
